FAERS Safety Report 13370945 (Version 1)
Quarter: 2017Q1

REPORT INFORMATION
  Report Type: Spontaneous
  Country: US (occurrence: US)
  Receive Date: 20170324
  Receipt Date: 20170324
  Transmission Date: 20170429
  Serious: Yes (Hospitalization, Other)
  Sender: FDA-Public Use
  Company Number: US-APOPHARMA USA, INC.-2017AP008842

PATIENT
  Age: 25 Year
  Sex: Male

DRUGS (8)
  1. RITUXIMAB [Concomitant]
     Active Substance: RITUXIMAB
     Indication: PRIMARY MEDIASTINAL LARGE B-CELL LYMPHOMA STAGE II
     Dosage: UNK UNK, UNKNOWN
     Route: 065
  2. VORINOSTAT [Concomitant]
     Active Substance: VORINOSTAT
     Indication: STEM CELL TRANSPLANT
     Dosage: UNK, UNKNOWN
     Route: 065
  3. IFOSFAMIDE. [Concomitant]
     Active Substance: IFOSFAMIDE
     Indication: PRIMARY MEDIASTINAL LARGE B-CELL LYMPHOMA STAGE II
     Dosage: UNK, UNKNOWN
     Route: 065
  4. CARBOPLATIN. [Concomitant]
     Active Substance: CARBOPLATIN
     Indication: PRIMARY MEDIASTINAL LARGE B-CELL LYMPHOMA STAGE II
     Dosage: UNK, UNKNOWN
     Route: 065
  5. ETOPOSIDE. [Concomitant]
     Active Substance: ETOPOSIDE
     Indication: PRIMARY MEDIASTINAL LARGE B-CELL LYMPHOMA STAGE II
     Dosage: UNK, UNKNOWN
     Route: 065
  6. GEMCITABINE [Concomitant]
     Active Substance: GEMCITABINE\GEMCITABINE HYDROCHLORIDE
     Indication: STEM CELL TRANSPLANT
     Route: 065
  7. BUSULFAN. [Concomitant]
     Active Substance: BUSULFAN
     Indication: STEM CELL TRANSPLANT
     Route: 065
  8. ALKERAN [Suspect]
     Active Substance: MELPHALAN
     Indication: STEM CELL TRANSPLANT
     Dosage: UNK, UNKNOWN
     Route: 065

REACTIONS (5)
  - Anaemia [Unknown]
  - Hepatitis C [Recovered/Resolved]
  - Alanine aminotransferase increased [Recovered/Resolved]
  - Thrombocytopenia [Unknown]
  - Hyperbilirubinaemia [Recovered/Resolved]
